FAERS Safety Report 7313622-5 (Version None)
Quarter: 2011Q1

REPORT INFORMATION
  Report Type: 
  Country: None (occurrence: None)
  Receive Date: 20110225
  Receipt Date: 20110223
  Transmission Date: 20110831
  Serious: Yes (Death)
  Sender: FDA-Public Use
  Company Number: US-B.I. PHARMACEUTICALS,INC./RIDGEFIELD-2011-BP-04928BP

PATIENT
  Sex: Male

DRUGS (3)
  1. DILTIAZEM [Concomitant]
     Dosage: 240 MG
     Route: 048
     Dates: end: 20100201
  2. COMBIVENT [Suspect]
     Dosage: 8 PUF
     Route: 055
     Dates: start: 20100901, end: 20110201
  3. QUINAPRIL [Concomitant]
     Dosage: 20 MG
     Route: 048
     Dates: end: 20100201

REACTIONS (1)
  - DEATH [None]
